FAERS Safety Report 11394399 (Version 1)
Quarter: 2015Q3

REPORT INFORMATION
  Report Type: Spontaneous
  Country: US (occurrence: None)
  Receive Date: 20150817
  Receipt Date: 20150817
  Transmission Date: 20151125
  Serious: No
  Sender: FDA-Public Use
  Company Number: None

PATIENT
  Age: 57 Year
  Sex: Female
  Weight: 116.12 kg

DRUGS (7)
  1. GLUCOSAMINE [Concomitant]
     Active Substance: GLUCOSAMINE
  2. MELOXICAM. [Concomitant]
     Active Substance: MELOXICAM
  3. SPIRONOLACTGONE [Concomitant]
  4. METOPROLOL [Concomitant]
     Active Substance: METOPROLOL
  5. VARENICLINE [Suspect]
     Active Substance: VARENICLINE
     Indication: SMOKING CESSATION THERAPY
     Dosage: TAKEN BY MOUTH
     Dates: start: 20150709, end: 20150730
  6. BIOTIN [Concomitant]
     Active Substance: BIOTIN
  7. CHONDROITIN [Concomitant]
     Active Substance: CHONDROITIN

REACTIONS (3)
  - Pain in extremity [None]
  - Bone pain [None]
  - Arthralgia [None]

NARRATIVE: CASE EVENT DATE: 20150723
